FAERS Safety Report 9515632 (Version 1)
Quarter: 2013Q3

REPORT INFORMATION
  Report Type: Spontaneous
  Country: CO (occurrence: CO)
  Receive Date: 20130911
  Receipt Date: 20130911
  Transmission Date: 20140515
  Serious: Yes (Hospitalization)
  Sender: FDA-Public Use
  Company Number: CO-UCBSA-097537

PATIENT
  Age: 78 Year
  Sex: Female

DRUGS (4)
  1. CIMZIA [Suspect]
     Indication: RHEUMATOID ARTHRITIS
     Route: 058
     Dates: start: 20130523
  2. PREDNISOLONE [Concomitant]
  3. LOSARTAN [Concomitant]
  4. ATORBASTATINE [Concomitant]

REACTIONS (1)
  - Urinary tract infection [Unknown]
